FAERS Safety Report 4621628-X (Version None)
Quarter: 2005Q1

REPORT INFORMATION
  Report Type: 
  Country: None (occurrence: None)
  Receive Date: 20050328
  Receipt Date: 20050312
  Transmission Date: 20050727
  Serious: Yes (Hospitalization, Congenital Anomaly, Other)
  Sender: FDA-Public Use
  Company Number: 200500660

PATIENT
  Sex: Female

DRUGS (1)
  1. BOTOX COSMETIC [Suspect]
     Indication: DRUG EXPOSURE DURING PREGNANCY

REACTIONS (10)
  - APGAR SCORE LOW [None]
  - ARTERIAL DISORDER [None]
  - CAESAREAN SECTION [None]
  - CONGENITAL ANOMALY [None]
  - DRUG EXPOSURE DURING PREGNANCY [None]
  - DYSPHAGIA [None]
  - GASTROENTERITIS ROTAVIRUS [None]
  - OESOPHAGEAL ATRESIA [None]
  - PREMATURE BABY [None]
  - TRACHEO-OESOPHAGEAL FISTULA [None]
